FAERS Safety Report 6041573-5 (Version None)
Quarter: 2009Q1

REPORT INFORMATION
  Report Type: 
  Country: None (occurrence: None)
  Receive Date: 20090116
  Receipt Date: 20090113
  Transmission Date: 20090719
  Serious: Yes (Other)
  Sender: FDA-Public Use
  Company Number: A0763246A

PATIENT
  Age: 69 Year
  Sex: Male

DRUGS (4)
  1. ADVAIR DISKUS 100/50 [Suspect]
     Indication: ASTHMA
     Route: 055
     Dates: start: 20070101, end: 20090109
  2. TARKA [Concomitant]
  3. SIMVASTATIN [Concomitant]
  4. COREG [Concomitant]

REACTIONS (4)
  - COUGH [None]
  - EYE HAEMORRHAGE [None]
  - VISION BLURRED [None]
  - VISUAL IMPAIRMENT [None]
